FAERS Safety Report 17201464 (Version 1)
Quarter: 2019Q4

REPORT INFORMATION
  Report Type: Spontaneous
  Country: MT (occurrence: MT)
  Receive Date: 20191226
  Receipt Date: 20191226
  Transmission Date: 20200122
  Serious: Yes (Hospitalization, Other)
  Sender: FDA-Public Use
  Company Number: MT-PFIZER INC-2019546990

PATIENT
  Age: 44 Year
  Sex: Male

DRUGS (8)
  1. BROMAZEPAM [Concomitant]
     Active Substance: BROMAZEPAM
     Indication: GENERALISED TONIC-CLONIC SEIZURE
     Dosage: 3 MG, 3X/DAY
  2. PHENYTOIN. [Suspect]
     Active Substance: PHENYTOIN
     Dosage: TAILED DOWN BY 50 MG EVERY 2 WEEKS UNTIL IT WAS STOPPED
  3. PHENYTOIN. [Suspect]
     Active Substance: PHENYTOIN
     Dosage: 350 MG, DAILY (100-100-150 MG)
  4. PHENYTOIN. [Suspect]
     Active Substance: PHENYTOIN
     Dosage: 100 MG, 3X/DAY
  5. AMITRIPTYLINE [Concomitant]
     Active Substance: AMITRIPTYLINE
     Indication: GENERALISED TONIC-CLONIC SEIZURE
     Dosage: 10 MG, 3X/DAY
  6. PHENYTOIN. [Suspect]
     Active Substance: PHENYTOIN
     Indication: GENERALISED TONIC-CLONIC SEIZURE
     Dosage: 100 MG, 3X/DAY
  7. CARBAMAZEPINE. [Suspect]
     Active Substance: CARBAMAZEPINE
     Indication: GENERALISED TONIC-CLONIC SEIZURE
     Dosage: 200 MG, 3X/DAY
  8. PHENOBARBITONE [Suspect]
     Active Substance: PHENOBARBITAL
     Indication: GENERALISED TONIC-CLONIC SEIZURE
     Dosage: 30 MG, 3X/DAY

REACTIONS (4)
  - Enzyme induction [Unknown]
  - Hypocalcaemia [Recovered/Resolved]
  - Vitamin D deficiency [Unknown]
  - Generalised tonic-clonic seizure [Recovered/Resolved]

NARRATIVE: CASE EVENT DATE: 201002
